FAERS Safety Report 7454412-2 (Version None)
Quarter: 2011Q2

REPORT INFORMATION
  Report Type: 
  Country: None (occurrence: None)
  Receive Date: 20110503
  Receipt Date: 20110418
  Transmission Date: 20111010
  Serious: No
  Sender: FDA-Public Use
  Company Number: US-BAYER-2011-034631

PATIENT
  Age: 76 Year
  Sex: Female

DRUGS (3)
  1. LORAZEPAM [Concomitant]
  2. NEXAVAR [Suspect]
     Indication: HEPATIC NEOPLASM MALIGNANT
     Dosage: 400 MG, BID
     Route: 048
     Dates: start: 20100223, end: 20110101
  3. MORPHINE [Concomitant]

REACTIONS (1)
  - HEPATIC NEOPLASM MALIGNANT [None]
